FAERS Safety Report 18270066 (Version 2)
Quarter: 2021Q1

REPORT INFORMATION
  Report Type: Spontaneous
  Country: GB (occurrence: GB)
  Receive Date: 20200915
  Receipt Date: 20210303
  Transmission Date: 20210419
  Serious: Yes (Other)
  Sender: FDA-Public Use
  Company Number: GB-BRISTOL-MYERS SQUIBB COMPANY-BMS-2020-047269

PATIENT
  Age: 54 Year
  Sex: Female

DRUGS (2)
  1. PEMBROLIZUMAB. [Suspect]
     Active Substance: PEMBROLIZUMAB
     Indication: METASTATIC MALIGNANT MELANOMA
     Dosage: UNK
     Route: 065
     Dates: start: 2017, end: 2019
  2. NIVOLUMAB [Suspect]
     Active Substance: NIVOLUMAB
     Indication: MALIGNANT MELANOMA
     Dosage: FOR 2 YEARS
     Route: 065
     Dates: start: 2017, end: 2019

REACTIONS (5)
  - Immune-mediated myositis [Recovered/Resolved]
  - Gastrointestinal toxicity [Unknown]
  - Neuropathy peripheral [Recovered/Resolved with Sequelae]
  - Malignant neoplasm progression [Unknown]
  - Skin toxicity [Unknown]

NARRATIVE: CASE EVENT DATE: 2019
